FAERS Safety Report 10248090 (Version 1)
Quarter: 2014Q2

REPORT INFORMATION
  Report Type: Spontaneous
  Country: AU (occurrence: AU)
  Receive Date: 20140619
  Receipt Date: 20140619
  Transmission Date: 20141212
  Serious: Yes (Death, Other)
  Sender: FDA-Public Use
  Company Number: AU-ROXANE LABORATORIES, INC.-2014-RO-00932RO

PATIENT
  Age: 45 Year
  Sex: Male

DRUGS (11)
  1. CYCLOPHOSPHAMIDE TABLETS USP [Suspect]
     Indication: STEM CELL TRANSPLANT
     Route: 065
     Dates: start: 200801
  2. METHOTREXATE [Suspect]
     Indication: BONE MARROW TRANSPLANT
     Route: 065
  3. PREDNISONE [Suspect]
     Indication: GRAFT VERSUS HOST DISEASE
     Dosage: 40 MG
     Route: 048
  4. CYTARABINE [Suspect]
     Indication: ACUTE MYELOID LEUKAEMIA
     Route: 065
  5. IDARUBICIN [Suspect]
     Indication: ACUTE MYELOID LEUKAEMIA
     Route: 065
  6. FLUDARABINE [Suspect]
     Indication: BONE MARROW TRANSPLANT
     Route: 065
  7. BUSULPHAN [Suspect]
     Indication: BONE MARROW TRANSPLANT
     Route: 065
  8. THYMOGLOBULIN [Suspect]
     Indication: BONE MARROW TRANSPLANT
     Route: 065
  9. CYCLOSPORIN [Suspect]
     Indication: BONE MARROW TRANSPLANT
     Route: 065
  10. HYDROCORTISONE [Suspect]
     Indication: GRAFT VERSUS HOST DISEASE
     Route: 061
  11. VALGANCICLOVIR [Suspect]
     Indication: CYTOMEGALOVIRUS TEST POSITIVE
     Route: 048

REACTIONS (6)
  - Post transplant lymphoproliferative disorder [Fatal]
  - Multi-organ failure [Fatal]
  - Leukaemia recurrent [Recovered/Resolved]
  - Graft versus host disease [Unknown]
  - Clostridium test positive [Unknown]
  - Norovirus test positive [Unknown]
